FAERS Safety Report 19894260 (Version 2)
Quarter: 2021Q4

REPORT INFORMATION
  Report Type: Report from Study
  Country: US (occurrence: US)
  Receive Date: 20210928
  Receipt Date: 20211004
  Transmission Date: 20220303
  Serious: Yes (Hospitalization)
  Sender: FDA-Public Use
  Company Number: US-VIFOR (INTERNATIONAL) INC.-VIT-2021-06020

PATIENT
  Age: 62 Year
  Sex: Male
  Weight: 127.12 kg

DRUGS (5)
  1. VELTASSA [Suspect]
     Active Substance: PATIROMER
     Indication: Hyperkalaemia
     Route: 048
     Dates: start: 202105
  2. VELTASSA [Suspect]
     Active Substance: PATIROMER
     Route: 048
     Dates: start: 202106, end: 20210815
  3. NOVOLOG [Concomitant]
     Active Substance: INSULIN ASPART
  4. INSULIN NOS [Concomitant]
     Active Substance: INSULIN NOS
  5. BRILINTA [Concomitant]
     Active Substance: TICAGRELOR
     Indication: Cardiac disorder

REACTIONS (7)
  - Tongue discomfort [Recovered/Resolved]
  - Dizziness [Recovered/Resolved]
  - Feeling abnormal [Recovered/Resolved]
  - Taste disorder [Recovered/Resolved]
  - Product taste abnormal [Recovered/Resolved]
  - Product physical issue [Recovered/Resolved]
  - Cellulitis [Unknown]

NARRATIVE: CASE EVENT DATE: 20210501
